FAERS Safety Report 12351482 (Version 4)
Quarter: 2016Q3

REPORT INFORMATION
  Report Type: Spontaneous
  Country: US (occurrence: US)
  Receive Date: 20160510
  Receipt Date: 20160817
  Transmission Date: 20161109
  Serious: Yes (Death, Disabling)
  Sender: FDA-Public Use
  Company Number: US-CELGENEUS-USA-2016051429

PATIENT
  Sex: Male

DRUGS (1)
  1. THALOMID [Suspect]
     Active Substance: THALIDOMIDE
     Indication: MYELODYSPLASTIC SYNDROME
     Dosage: 50 MILLIGRAM
     Route: 048
     Dates: start: 200708, end: 201604

REACTIONS (2)
  - Cardiac failure [Not Recovered/Not Resolved]
  - Pulmonary fibrosis [Fatal]
